FAERS Safety Report 9479012 (Version 9)
Quarter: 2013Q4

REPORT INFORMATION
  Report Type: Report from Study
  Country: NO (occurrence: ES)
  Receive Date: 20130827
  Receipt Date: 20131223
  Transmission Date: 20140711
  Serious: Yes (Death, Hospitalization)
  Sender: FDA-Public Use
  Company Number: NO-ROCHE-1243717

PATIENT
  Age: 69 Year
  Sex: Male
  Weight: 81 kg

DRUGS (19)
  1. RITUXIMAB [Suspect]
     Indication: B-CELL LYMPHOMA
     Route: 042
     Dates: start: 20121220
  2. RHUPH20/RITUXIMAB [Suspect]
     Indication: B-CELL LYMPHOMA
     Dosage: DATE OF LAST DOSE PRIOR TO SAE: 11/JUN/2013
     Route: 058
     Dates: start: 20130117
  3. RHUPH20/RITUXIMAB [Suspect]
     Route: 058
     Dates: start: 20130219
  4. RHUPH20/RITUXIMAB [Suspect]
     Route: 058
     Dates: start: 20130319
  5. RHUPH20/RITUXIMAB [Suspect]
     Route: 058
     Dates: start: 20130416
  6. RHUPH20/RITUXIMAB [Suspect]
     Route: 058
     Dates: start: 20130514
  7. RHUPH20/RITUXIMAB [Suspect]
     Route: 058
     Dates: start: 20130611
  8. ASPIRIN [Suspect]
     Indication: POLYCYTHAEMIA VERA
     Route: 065
     Dates: start: 20070101, end: 20130625
  9. LOSARTAN [Concomitant]
     Indication: HYPERTENSION
     Route: 065
     Dates: start: 20090101, end: 20130625
  10. SOLU-CORTEF [Concomitant]
     Indication: INFUSION RELATED REACTION
     Route: 065
     Dates: start: 20121220, end: 20121220
  11. FURIX [Concomitant]
     Indication: WEIGHT INCREASED
     Route: 065
     Dates: start: 20121221, end: 20121221
  12. MORFIN [Concomitant]
     Indication: PAIN
     Route: 065
     Dates: start: 20130611, end: 20130625
  13. VOLTAREN [Concomitant]
     Indication: PAIN
     Dosage: DAILY
     Route: 065
     Dates: start: 20130610, end: 20130610
  14. PINEX FORTE [Concomitant]
     Indication: PAIN
     Dosage: 500 MG/30 MG
     Route: 065
     Dates: start: 20130610, end: 20130610
  15. PINEX FORTE [Concomitant]
     Indication: PAIN
     Dosage: 500MG/30 MG AS NEEDED
     Route: 065
     Dates: start: 20130610, end: 20130611
  16. ARTHROTEC [Concomitant]
     Indication: PAIN
     Route: 065
     Dates: start: 20130610, end: 20130611
  17. PARACET [Concomitant]
     Route: 065
     Dates: start: 20121220, end: 20130611
  18. CETRIZINE [Concomitant]
     Route: 065
     Dates: start: 20120117, end: 20130625
  19. PREDNISOLON [Concomitant]
     Route: 065
     Dates: start: 20121220, end: 20130611

REACTIONS (3)
  - Cerebral haemorrhage [Fatal]
  - Pneumonia [Not Recovered/Not Resolved]
  - Thrombocytopenia [Not Recovered/Not Resolved]
